FAERS Safety Report 6756981-4 (Version None)
Quarter: 2010Q2

REPORT INFORMATION
  Report Type: 
  Country: None (occurrence: None)
  Receive Date: 20100603
  Receipt Date: 20100603
  Transmission Date: 20101027
  Serious: Yes (Hospitalization)
  Sender: FDA-Public Use
  Company Number: None

PATIENT
  Sex: Female
  Weight: 78.0187 kg

DRUGS (11)
  1. PEGASYS [Suspect]
     Indication: HEPATITIS C
     Dosage: 180 MCG/0.5 ML PFS WEEKLY SQ
     Route: 058
     Dates: start: 20100509, end: 20100523
  2. RIBAVIRIN [Suspect]
     Indication: HEPATITIS C
     Dosage: -2- 200 MG AM -3- 200 MG PM DAILY PO
     Route: 048
     Dates: start: 20100509, end: 20100531
  3. SYMBICORT [Concomitant]
  4. MULTI-VITAMIN [Concomitant]
  5. CLONIDINE [Concomitant]
  6. BUSPIRONE HCL [Concomitant]
  7. LISINOPRIL [Concomitant]
  8. HCTZ [Concomitant]
  9. SIMVASTATIN [Concomitant]
  10. PHENAZOPYRIDINE HCL TAB [Concomitant]
  11. ENABLEX [Concomitant]

REACTIONS (2)
  - ABDOMINAL DISCOMFORT [None]
  - INJECTION SITE SWELLING [None]
